FAERS Safety Report 4674379-X (Version None)
Quarter: 2005Q2

REPORT INFORMATION
  Report Type: 
  Country: None (occurrence: None)
  Receive Date: 20050524
  Receipt Date: 20050512
  Transmission Date: 20051028
  Serious: Yes (Other)
  Sender: FDA-Public Use
  Company Number: 200504039

PATIENT
  Age: 14 Year
  Sex: Female

DRUGS (2)
  1. TAZORAC [Suspect]
     Indication: ACNE
     Dates: start: 20041201, end: 20050401
  2. DOXYCYCLINE [Suspect]
     Indication: ACNE
     Dosage: ACNE
     Dates: start: 20050101, end: 20050301

REACTIONS (4)
  - BENIGN INTRACRANIAL HYPERTENSION [None]
  - BRAIN OEDEMA [None]
  - DRUG INEFFECTIVE [None]
  - LUMBAR PUNCTURE HEADACHE [None]
